APPROVED DRUG PRODUCT: AROMASIN
Active Ingredient: EXEMESTANE
Strength: 25MG
Dosage Form/Route: TABLET;ORAL
Application: N020753 | Product #001 | TE Code: AB
Applicant: PFIZER INC
Approved: Oct 21, 1999 | RLD: Yes | RS: Yes | Type: RX